FAERS Safety Report 17519307 (Version 1)
Quarter: 2020Q1

REPORT INFORMATION
  Report Type: Spontaneous
  Country: US (occurrence: US)
  Receive Date: 20200310
  Receipt Date: 20200310
  Transmission Date: 20200409
  Serious: No
  Sender: FDA-Public Use
  Company Number: US-ALLERGAN-1923294US

PATIENT
  Sex: Female

DRUGS (2)
  1. ESTRACE [Suspect]
     Active Substance: ESTRADIOL
     Indication: VULVOVAGINAL DRYNESS
     Dosage: 2G, 3 NIGHTS PER WEEK
     Route: 067
     Dates: end: 20190529
  2. ESTRACE [Suspect]
     Active Substance: ESTRADIOL
     Dosage: 2 G, QHS
     Route: 067
     Dates: start: 20190516

REACTIONS (2)
  - Product dose omission [Unknown]
  - Product packaging quantity issue [Unknown]

NARRATIVE: CASE EVENT DATE: 20190529
